FAERS Safety Report 9230013 (Version 3)
Quarter: 2013Q3

REPORT INFORMATION
  Report Type: Spontaneous
  Country: US (occurrence: US)
  Receive Date: 20130415
  Receipt Date: 20130701
  Transmission Date: 20140515
  Serious: Yes (Other)
  Sender: FDA-Public Use
  Company Number: US-BAYER-2013-045629

PATIENT
  Age: 43 Year
  Sex: Female

DRUGS (2)
  1. MIRENA [Suspect]
     Indication: CONTRACEPTION
     Dosage: 20 MCG/24HR, CONT
     Route: 015
     Dates: start: 20120310, end: 20130404
  2. VITAMIN C [Concomitant]

REACTIONS (9)
  - Genital haemorrhage [None]
  - Abdominal pain [None]
  - Device physical property issue [None]
  - Hot flush [None]
  - Irritability [None]
  - Asthenia [None]
  - Weight increased [None]
  - Breast tenderness [None]
  - Loss of libido [None]
